FAERS Safety Report 9417597 (Version 1)
Quarter: 2013Q3

REPORT INFORMATION
  Report Type: Report from Study
  Country: US (occurrence: US)
  Receive Date: 20130724
  Receipt Date: 20130724
  Transmission Date: 20140515
  Serious: Yes (Hospitalization)
  Sender: FDA-Public Use
  Company Number: US-ROCHE-754847

PATIENT
  Age: 66 Year
  Sex: Female
  Weight: 59.5 kg

DRUGS (1)
  1. TRASTUZUMAB EMTANSINE [Suspect]
     Indication: BREAST CANCER METASTATIC
     Dosage: 3.6 MG/KG, Q21D, MOST RECENT DOSE WAS ON 14/DEC/2010
     Route: 042

REACTIONS (1)
  - Pneumonia [Recovered/Resolved]
